FAERS Safety Report 10142601 (Version 1)
Quarter: 2014Q2

REPORT INFORMATION
  Report Type: Spontaneous
  Country: PL (occurrence: PL)
  Receive Date: 20140430
  Receipt Date: 20140430
  Transmission Date: 20141212
  Serious: Yes (Life-Threatening, Hospitalization, Other)
  Sender: FDA-Public Use
  Company Number: PL-009507513-1404POL012595

PATIENT
  Age: 59 Year
  Sex: Female
  Weight: 62 kg

DRUGS (6)
  1. VICTRELIS [Suspect]
     Indication: CHRONIC HEPATITIS C
     Dosage: 800 MG, TID
     Route: 048
     Dates: start: 20131119, end: 20140409
  2. COPEGUS [Suspect]
     Indication: CHRONIC HEPATITIS C
     Dosage: 200 MG, TID
     Route: 048
     Dates: start: 20131022, end: 20140409
  3. PEGASYS [Suspect]
     Indication: CHRONIC HEPATITIS C
     Dosage: 135 MICROGRAM, FREQUENCY: ONCE A WEEK
     Route: 058
     Dates: start: 20131022, end: 20140409
  4. MONONIT [Concomitant]
     Indication: VARICES OESOPHAGEAL
     Dosage: TOTAL DAILY DOSE: 15 MG(FREQUENCY: 3X5 MG)
     Dates: start: 2010
  5. PROPRANOLOL HYDROCHLORIDE [Concomitant]
     Indication: VARICES OESOPHAGEAL
     Dosage: TOTAL DAILY DOSE: 15 MG (FREQUENCY:3X5 MG)
     Dates: start: 2010
  6. CONTROLOC [Concomitant]
     Indication: VARICES OESOPHAGEAL
     Dosage: TOTAL DAILY DOSE: 40 MG(FREQUENCY: 1 X 40 MG)
     Dates: start: 2010

REACTIONS (3)
  - Pneumonia [Recovered/Resolved]
  - Anaemia [Recovered/Resolved]
  - Packed red blood cell transfusion [Recovered/Resolved]
